FAERS Safety Report 8858498 (Version 1)
Quarter: 2012Q4

REPORT INFORMATION
  Report Type: 
  Country: US (occurrence: US)
  Receive Date: 20121024
  Receipt Date: 20121024
  Transmission Date: 20130627
  Serious: Yes (Hospitalization, Other)
  Sender: FDA-Public Use
  Company Number: US-VERTEX PHARMACEUTICAL INC.-AE-2012-011810

PATIENT
  Age: 67 Year
  Sex: Male
  Weight: 74 kg

DRUGS (3)
  1. INCIVEK [Suspect]
     Indication: HEPATITIS C
     Dosage: 750 mg, tid
     Route: 048
     Dates: start: 20120110, end: 20120403
  2. PEGASYS [Suspect]
     Indication: HEPATITIS C
     Dosage: 180 ?g, qw
     Route: 058
     Dates: start: 20120110, end: 20120403
  3. RIBAVIRIN [Suspect]
     Indication: HEPATITIS C
     Dosage: 1000 mg, qd
     Route: 048
     Dates: start: 20120110, end: 20120403

REACTIONS (16)
  - Pneumonia [Unknown]
  - Sepsis [Unknown]
  - Stevens-Johnson syndrome [Unknown]
  - Drug eruption [Unknown]
  - Hepatic infiltration eosinophilic [Unknown]
  - Immunosuppression [Unknown]
  - Eosinophilia [Unknown]
  - Blood immunoglobulin E increased [Unknown]
  - Clostridium difficile infection [Unknown]
  - Mucosal inflammation [Unknown]
  - Hallucination [Unknown]
  - Stomatitis [Unknown]
  - Confusional state [Unknown]
  - Generalised oedema [Unknown]
  - Oral candidiasis [Unknown]
  - Yellow skin [Unknown]
